FAERS Safety Report 25601629 (Version 1)
Quarter: 2025Q3

REPORT INFORMATION
  Report Type: Spontaneous
  Country: EU (occurrence: EU)
  Receive Date: 20250724
  Receipt Date: 20250724
  Transmission Date: 20251021
  Serious: Yes (Hospitalization, Other)
  Sender: BAUSCH AND LOMB
  Company Number: EU-BAUSCH-BH-2025-015186

PATIENT
  Age: 5 Year
  Sex: Female
  Weight: 12 kg

DRUGS (5)
  1. AZATHIOPRINE [Suspect]
     Active Substance: AZATHIOPRINE
     Indication: Crohn^s disease
     Dosage: DAILY DOSE: 2 {DF} EVERY 1 DAY
     Route: 048
     Dates: start: 20240717, end: 20240829
  2. AZATHIOPRINE [Suspect]
     Active Substance: AZATHIOPRINE
     Route: 065
  3. NITROFURANTOIN [Concomitant]
     Active Substance: NITROFURANTOIN
     Indication: Urinary tract infection
     Dosage: DAILY DOSE: 20 MG EVERY 1 DAY
     Route: 050
     Dates: start: 20231009
  4. MICTONETTEN [Concomitant]
     Indication: Urinary incontinence
     Dosage: DAILY DOSE: 2 {DF} EVERY 1 DAY
     Route: 050
     Dates: start: 20231009
  5. COTRIMOXAZOLE [Concomitant]
     Active Substance: SULFAMETHOXAZOLE\TRIMETHOPRIM
     Indication: Urinary tract infection
     Route: 048
     Dates: start: 20240819, end: 20240827

REACTIONS (4)
  - Tachycardia [Recovered/Resolved]
  - Chills [Recovered/Resolved]
  - Pancytopenia [Recovered/Resolved]
  - Pyrexia [Recovered/Resolved]

NARRATIVE: CASE EVENT DATE: 20240822
